FAERS Safety Report 10091615 (Version 2)
Quarter: 2014Q2

REPORT INFORMATION
  Report Type: Spontaneous
  Country: US (occurrence: US)
  Receive Date: 20140421
  Receipt Date: 20140421
  Transmission Date: 20141212
  Serious: No
  Sender: FDA-Public Use
  Company Number: US-GILEAD-2012-0066268

PATIENT
  Sex: Female

DRUGS (5)
  1. LETAIRIS [Suspect]
     Indication: PULMONARY ARTERIAL HYPERTENSION
     Dosage: 5 MG, QD
     Route: 048
     Dates: start: 20121128, end: 2012
  2. LETAIRIS [Suspect]
     Indication: PULMONARY FIBROSIS
  3. BACTRIM [Concomitant]
     Indication: PULMONARY FIBROSIS
     Route: 048
  4. IMURAN                             /00001501/ [Concomitant]
     Indication: PULMONARY FIBROSIS
     Dosage: UNK
     Route: 048
  5. PREDNISONE [Concomitant]
     Indication: PULMONARY FIBROSIS
     Dosage: UNK
     Route: 048

REACTIONS (2)
  - Erythema [Recovered/Resolved]
  - Hot flush [Recovered/Resolved]
